FAERS Safety Report 8612683-0 (Version None)
Quarter: 2012Q3

REPORT INFORMATION
  Report Type: 
  Country: None (occurrence: None)
  Receive Date: 20120822
  Receipt Date: 20110928
  Transmission Date: 20120928
  Serious: No
  Sender: FDA-Public Use
  Company Number: US-ASTRAZENECA-2011SE58515

PATIENT
  Sex: Female

DRUGS (2)
  1. SYMBICORT [Suspect]
     Route: 055
  2. PROVENTIL [Concomitant]

REACTIONS (4)
  - DRUG DOSE OMISSION [None]
  - COUGH [None]
  - ASTHMA [None]
  - VOMITING [None]
